FAERS Safety Report 18667104 (Version 5)
Quarter: 2021Q2

REPORT INFORMATION
  Report Type: Spontaneous
  Country: US (occurrence: US)
  Receive Date: 20201228
  Receipt Date: 20210628
  Transmission Date: 20210717
  Serious: Yes (Other)
  Sender: FDA-Public Use
  Company Number: US-LUPIN PHARMACEUTICALS INC.-2020-10731

PATIENT
  Sex: Female

DRUGS (2)
  1. ALBUTEROL SULFATE INHALATION AEROSOL, 90 MCG/ACTUATION [Suspect]
     Active Substance: ALBUTEROL SULFATE
     Indication: BRONCHOSPASM
     Dosage: UNK
     Dates: start: 202011
  2. ALBUTEROL SULFATE INHALATION AEROSOL, 90 MCG/ACTUATION [Suspect]
     Active Substance: ALBUTEROL SULFATE
     Dosage: UNK (OVER TWO MONTHS AGO)
     Dates: start: 202011

REACTIONS (10)
  - Throat irritation [Unknown]
  - Device delivery system issue [Unknown]
  - Dyspnoea [Recovering/Resolving]
  - Product quality issue [Unknown]
  - Product substitution issue [Unknown]
  - Presyncope [Unknown]
  - Asthma [Recovering/Resolving]
  - Cough [Unknown]
  - Wrong technique in product usage process [Unknown]
  - Product taste abnormal [Unknown]
